FAERS Safety Report 5567810-9 (Version None)
Quarter: 2007Q4

REPORT INFORMATION
  Report Type: 
  Country: None (occurrence: None)
  Receive Date: 20071220
  Receipt Date: 20071210
  Transmission Date: 20080405
  Serious: Yes (Hospitalization)
  Sender: FDA-Public Use
  Company Number: JP-ROCHE-536622

PATIENT
  Age: 67 Year
  Sex: Female

DRUGS (14)
  1. RIVOTRIL [Suspect]
     Indication: DRUG USE FOR UNKNOWN INDICATION
     Route: 048
     Dates: start: 20071130, end: 20071209
  2. BASEN [Concomitant]
     Route: 048
  3. PROMAC [Concomitant]
     Dosage: DOSE FORM: ORAL FORMULATION
     Route: 048
  4. CALCIUM LACTATE [Concomitant]
     Route: 048
  5. ZANTAC [Concomitant]
  6. ONEALFA [Concomitant]
     Dosage: DOSE FORM: ORAL FORMULATION
     Route: 048
  7. BONALON [Concomitant]
     Route: 048
  8. PREDONINE [Concomitant]
  9. DIOVAN [Concomitant]
     Route: 048
  10. ATELEC [Concomitant]
     Route: 048
  11. BIOFERMIN [Concomitant]
  12. INDOMETHACIN [Concomitant]
  13. TAZOCIN [Concomitant]
     Dosage: ROUTE: INJECTABLE (NOT OTHERWISE SPECIFIED)
  14. TARGOCID [Concomitant]
     Route: 041
     Dates: start: 20071123, end: 20071207

REACTIONS (1)
  - STEVENS-JOHNSON SYNDROME [None]
